FAERS Safety Report 6523992-3 (Version None)
Quarter: 2009Q4

REPORT INFORMATION
  Report Type: 
  Country: None (occurrence: None)
  Receive Date: 20091231
  Receipt Date: 20091228
  Transmission Date: 20100525
  Serious: Yes (Death, Other)
  Sender: FDA-Public Use
  Company Number: IL-CELGENEUS-082-50794-09122146

PATIENT
  Sex: Male

DRUGS (1)
  1. VIDAZA [Suspect]
     Route: 050

REACTIONS (5)
  - ABSCESS [None]
  - H1N1 INFLUENZA [None]
  - INFLUENZA [None]
  - MYOCARDIAL INFARCTION [None]
  - SEPSIS [None]
